FAERS Safety Report 11080342 (Version 3)
Quarter: 2016Q1

REPORT INFORMATION
  Report Type: Report from Study
  Country: US (occurrence: US)
  Receive Date: 20150430
  Receipt Date: 20160210
  Transmission Date: 20160525
  Serious: Yes (Hospitalization)
  Sender: FDA-Public Use
  Company Number: US-ASTRAZENECA-2015SE36317

PATIENT
  Age: 22310 Day
  Sex: Female
  Weight: 50.8 kg

DRUGS (13)
  1. PULMICORT RESPULES [Suspect]
     Active Substance: BUDESONIDE
     Indication: ASTHMA
     Dosage: 1 MG/2ML, TWICE A DAY
     Route: 055
  2. CLONAZEPAM. [Concomitant]
     Active Substance: CLONAZEPAM
     Indication: DEPRESSION
     Dosage: GENERIC, 1 MG FOUR TIMES DAILY AS NEEDED FOR THE PAST 3 YEARS
  3. PULMICORT RESPULES [Suspect]
     Active Substance: BUDESONIDE
     Indication: ASTHMA
     Dosage: 0.5 MG IN 2 CC, TWICE DAILY
     Route: 055
  4. PERFOROMIST [Concomitant]
     Active Substance: FORMOTEROL FUMARATE DIHYDRATE
     Indication: ASTHMA
     Dates: start: 2014
  5. BACLOFEN. [Concomitant]
     Active Substance: BACLOFEN
     Indication: FIBROMYALGIA
  6. PROAIR HFA [Concomitant]
     Active Substance: ALBUTEROL SULFATE
     Indication: ASTHMA
     Dosage: AS REQUIRED
  7. PULMICORT RESPULES [Suspect]
     Active Substance: BUDESONIDE
     Indication: ASTHMA
     Route: 055
  8. TUDORZA PRESSAIR [Suspect]
     Active Substance: ACLIDINIUM BROMIDE
     Indication: DYSPNOEA
     Route: 055
     Dates: start: 2015
  9. LEVALBUTEROL. [Concomitant]
     Active Substance: LEVALBUTEROL
     Indication: ASTHMA
     Dosage: 1.25 MG IN 3 ML EVERY 4 TO 6 HRS AS NEEDED
     Route: 055
  10. ZOLOFT [Concomitant]
     Active Substance: SERTRALINE HYDROCHLORIDE
     Indication: DEPRESSION
  11. TUDORZA PRESSAIR [Suspect]
     Active Substance: ACLIDINIUM BROMIDE
     Indication: ASTHMA
     Route: 055
     Dates: start: 2015
  12. ZYFLO [Concomitant]
     Active Substance: ZILEUTON
     Indication: ASTHMA
  13. FIORICET [Concomitant]
     Active Substance: ACETAMINOPHEN\BUTALBITAL\CAFFEINE
     Indication: MIGRAINE
     Dosage: 50 AND 325 AND 40 MG EVERY 8 HOURS AS NEEDED
     Dates: start: 2014

REACTIONS (9)
  - Drug dose omission [Unknown]
  - Disease recurrence [Unknown]
  - Intentional product misuse [Unknown]
  - Malaise [Unknown]
  - Asthma [Unknown]
  - Bronchitis [Unknown]
  - Blood sodium decreased [Unknown]
  - Electrolyte imbalance [Unknown]
  - Laryngitis [Unknown]

NARRATIVE: CASE EVENT DATE: 20150413
